FAERS Safety Report 23298069 (Version 1)
Quarter: 2023Q4

REPORT INFORMATION
  Report Type: Other
  Country: FR (occurrence: FR)
  Receive Date: 20231214
  Receipt Date: 20231214
  Transmission Date: 20240110
  Serious: Yes (Other)
  Sender: FDA-Public Use
  Company Number: None

PATIENT
  Age: 77 Year
  Sex: Male
  Weight: 58 kg

DRUGS (28)
  1. PADCEV [Suspect]
     Active Substance: ENFORTUMAB VEDOTIN-EJFV
     Indication: Metastatic carcinoma of the bladder
     Dosage: 69 MG, CYCLIC (C1J1)
     Route: 042
     Dates: start: 20220908, end: 20220908
  2. PADCEV [Suspect]
     Active Substance: ENFORTUMAB VEDOTIN-EJFV
     Dosage: 69 MG, CYCLIC (C1J8)
     Route: 042
     Dates: start: 20220915, end: 20220915
  3. PADCEV [Suspect]
     Active Substance: ENFORTUMAB VEDOTIN-EJFV
     Dosage: 69 MG, CYCLIC (C1J15)
     Route: 042
     Dates: start: 20220922, end: 20220922
  4. PADCEV [Suspect]
     Active Substance: ENFORTUMAB VEDOTIN-EJFV
     Dosage: 69 MG, CYCLIC (C2J1)
     Route: 042
     Dates: start: 20221006, end: 20221006
  5. PADCEV [Suspect]
     Active Substance: ENFORTUMAB VEDOTIN-EJFV
     Dosage: 69 MG, CYCLIC (C2J8)
     Route: 042
     Dates: start: 20221013, end: 20221013
  6. PADCEV [Suspect]
     Active Substance: ENFORTUMAB VEDOTIN-EJFV
     Dosage: 69 MG, CYCLIC  (C2J15)
     Route: 042
     Dates: start: 20221020, end: 20221020
  7. PADCEV [Suspect]
     Active Substance: ENFORTUMAB VEDOTIN-EJFV
     Dosage: 69 MG, CYCLIC (C3J1)
     Route: 042
     Dates: start: 20221103, end: 20221103
  8. PADCEV [Suspect]
     Active Substance: ENFORTUMAB VEDOTIN-EJFV
     Dosage: 69 MG, CYCLIC (C3J8)
     Route: 042
     Dates: start: 20221110, end: 20221110
  9. PADCEV [Suspect]
     Active Substance: ENFORTUMAB VEDOTIN-EJFV
     Dosage: 75 MG, CYCLIC (C4J1)
     Route: 042
     Dates: start: 20221201, end: 20221201
  10. PADCEV [Suspect]
     Active Substance: ENFORTUMAB VEDOTIN-EJFV
     Dosage: 75 MG, CYCLIC (C4J8)
     Route: 042
     Dates: start: 20221208, end: 20221208
  11. PADCEV [Suspect]
     Active Substance: ENFORTUMAB VEDOTIN-EJFV
     Dosage: 75 MG, CYCLIC (C4J15)
     Route: 042
     Dates: start: 20221215, end: 20221215
  12. PADCEV [Suspect]
     Active Substance: ENFORTUMAB VEDOTIN-EJFV
     Dosage: 75 MG, CYCLIC (C5J1)
     Route: 042
     Dates: start: 20221229, end: 20221229
  13. PADCEV [Suspect]
     Active Substance: ENFORTUMAB VEDOTIN-EJFV
     Dosage: 75 MG, CYCLIC  (C5J18)
     Route: 042
     Dates: start: 20230105, end: 20230105
  14. PADCEV [Suspect]
     Active Substance: ENFORTUMAB VEDOTIN-EJFV
     Dosage: 75 MG, CYCLIC (C5J15)
     Route: 042
     Dates: start: 20230112, end: 20230112
  15. PADCEV [Suspect]
     Active Substance: ENFORTUMAB VEDOTIN-EJFV
     Dosage: 80 MG, CYCLIC (C6J1)
     Route: 042
     Dates: start: 20230126, end: 20230126
  16. PADCEV [Suspect]
     Active Substance: ENFORTUMAB VEDOTIN-EJFV
     Dosage: 80 MG, CYCLIC (C6J8)
     Route: 042
     Dates: start: 20230202, end: 20230202
  17. PADCEV [Suspect]
     Active Substance: ENFORTUMAB VEDOTIN-EJFV
     Dosage: 80 MG, CYCLIC (C6J15)
     Route: 042
     Dates: start: 20230209, end: 20230209
  18. PADCEV [Suspect]
     Active Substance: ENFORTUMAB VEDOTIN-EJFV
     Dosage: 80 MG, CYCLIC (C7J1)
     Route: 042
     Dates: start: 20230223, end: 20230223
  19. PADCEV [Suspect]
     Active Substance: ENFORTUMAB VEDOTIN-EJFV
     Dosage: 80 MG, CYCLIC (C7J8)
     Route: 042
     Dates: start: 20230302, end: 20230302
  20. PADCEV [Suspect]
     Active Substance: ENFORTUMAB VEDOTIN-EJFV
     Dosage: 73 MG, CYCLIC (C8J1)
     Route: 042
     Dates: start: 20230406, end: 20230406
  21. PADCEV [Suspect]
     Active Substance: ENFORTUMAB VEDOTIN-EJFV
     Dosage: 73 MG, CYCLIC (C8J8)
     Route: 042
     Dates: start: 20230413, end: 20230413
  22. PADCEV [Suspect]
     Active Substance: ENFORTUMAB VEDOTIN-EJFV
     Dosage: 73 MG, CYCLIC (C8J15)
     Route: 042
     Dates: start: 20230420, end: 20230420
  23. PADCEV [Suspect]
     Active Substance: ENFORTUMAB VEDOTIN-EJFV
     Dosage: 73 MG, CYCLIC (C9J1)
     Route: 042
     Dates: start: 20230504, end: 20230504
  24. PADCEV [Suspect]
     Active Substance: ENFORTUMAB VEDOTIN-EJFV
     Dosage: 73 MG, CYCLIC (C9J8)
     Route: 042
     Dates: start: 20230511, end: 20230511
  25. PADCEV [Suspect]
     Active Substance: ENFORTUMAB VEDOTIN-EJFV
     Dosage: 73 MG, CYCLIC (C9J15)
     Route: 042
     Dates: start: 20230519, end: 20230519
  26. PADCEV [Suspect]
     Active Substance: ENFORTUMAB VEDOTIN-EJFV
     Dosage: 73 MG, CYCLIC (C10J1)
     Route: 042
     Dates: start: 20230601, end: 20230601
  27. PADCEV [Suspect]
     Active Substance: ENFORTUMAB VEDOTIN-EJFV
     Dosage: 73 MG, CYCLIC (C10J8)
     Route: 042
     Dates: start: 20230608, end: 20230608
  28. PADCEV [Suspect]
     Active Substance: ENFORTUMAB VEDOTIN-EJFV
     Dosage: 73 MG, CYCLIC (C10J15)
     Route: 042
     Dates: start: 20230615, end: 20230615

REACTIONS (1)
  - Pemphigoid [Recovered/Resolved]

NARRATIVE: CASE EVENT DATE: 20230615
